FAERS Safety Report 6538811-9 (Version None)
Quarter: 2010Q1

REPORT INFORMATION
  Report Type: 
  Country: None (occurrence: None)
  Receive Date: 20100114
  Receipt Date: 20100114
  Transmission Date: 20100710
  Serious: Yes (Hospitalization)
  Sender: FDA-Public Use
  Company Number: None

PATIENT
  Sex: Male
  Weight: 129.5 kg

DRUGS (8)
  1. FLUOROURACIL [Suspect]
     Dosage: 7308 MG
  2. LEUCOVORIN CALCIUM [Suspect]
     Dosage: 1044 MG
  3. ELOXATIN [Suspect]
     Dosage: 222 MG
  4. AUGMENTIN [Concomitant]
  5. LANTUS [Concomitant]
  6. METFORMIN/AVANDIA COMBINATION [Concomitant]
  7. PERCOCET [Concomitant]
  8. ZOFRAN [Concomitant]

REACTIONS (3)
  - DYSPHAGIA [None]
  - OROPHARYNGEAL PAIN [None]
  - PHARYNGITIS [None]
